FAERS Safety Report 9238899 (Version 1)
Quarter: 2013Q1

REPORT INFORMATION
  Report Type: Spontaneous
  Country: US (occurrence: None)
  Receive Date: 20121102
  Receipt Date: 20121102
  Transmission Date: 20140127
  Serious: Yes (Hospitalization)
  Sender: FDA-Public Use
  Company Number: 127607

PATIENT
  Age: 63 Year
  Sex: Female

DRUGS (1)
  1. LEUCOVORIN CALCIUM [Suspect]
     Indication: HEPATIC CANCER
     Dosage: 1000MG/1XDAY/IVP
     Dates: start: 20111106

REACTIONS (1)
  - Pancytopenia [None]
